FAERS Safety Report 7375161-5 (Version None)
Quarter: 2011Q1

REPORT INFORMATION
  Report Type: 
  Country: None (occurrence: None)
  Receive Date: 20110325
  Receipt Date: 20110323
  Transmission Date: 20110831
  Serious: Yes (Death, Hospitalization, Other)
  Sender: FDA-Public Use
  Company Number: CH-PFIZER INC-2011063885

PATIENT
  Age: 81 Year
  Sex: Male

DRUGS (16)
  1. LYRICA [Suspect]
     Indication: NEURALGIA
     Dosage: 150 MG, 3X/DAY
     Route: 048
     Dates: end: 20110222
  2. DAFALGAN [Concomitant]
     Dosage: 1 G, 3X/DAY
     Route: 048
  3. CALCIMAGON-D3 [Concomitant]
     Dosage: 1 DF, 2X/DAY
     Route: 048
  4. ASPIRIN [Concomitant]
     Dosage: 100 MG, 1X/DAY
     Route: 048
  5. LYRICA [Suspect]
     Dosage: 150 MG, 2X/DAY
     Route: 048
     Dates: start: 20110223
  6. TRILEPTAL [Suspect]
     Dosage: 300 MG 2X/DAY AND 150 MG 2X/DAY
     Route: 048
     Dates: start: 20110210, end: 20110222
  7. TRILEPTAL [Suspect]
     Dosage: 150 MG, 4X/DAY
     Route: 048
     Dates: start: 20110223
  8. IRBESARTAN [Concomitant]
     Dosage: 150 MG, 1X/DAY
     Route: 048
  9. NEXIUM [Concomitant]
     Dosage: 20 MG, 1X/DAY
     Route: 048
  10. VENLAFAXINE HCL [Suspect]
     Dosage: 75 MG, 1X/DAY
     Route: 048
     Dates: end: 20110210
  11. TRILEPTAL [Suspect]
     Indication: NEURALGIA
     Dosage: 300 MG 3X/DAY AND 150 1X/DAY
     Route: 048
     Dates: end: 20110207
  12. VENLAFAXINE HCL [Suspect]
     Dosage: 37.5 MG, 1X/DAY
     Route: 048
     Dates: start: 20110211, end: 20110221
  13. TRILEPTAL [Suspect]
     Dosage: 150 MG, 3X/DAY
     Route: 048
     Dates: start: 20110208, end: 20110208
  14. FOSAMAX [Concomitant]
     Dosage: 70 MG, WEEKLY
     Route: 048
  15. TRILEPTAL [Suspect]
     Dosage: 300 3X/DAY AND 150 MG 1X/DAY
     Route: 048
     Dates: start: 20110209, end: 20110209
  16. ARIXTRA [Concomitant]
     Dosage: 2.5 MG, 1X/DAY
     Route: 058
     Dates: start: 20110131

REACTIONS (4)
  - CARDIAC ARREST [None]
  - LOBAR PNEUMONIA [None]
  - DRUG LEVEL ABOVE THERAPEUTIC [None]
  - RENAL FAILURE ACUTE [None]
